FAERS Safety Report 17424348 (Version 1)
Quarter: 2020Q1

REPORT INFORMATION
  Report Type: Report from Study
  Country: None (occurrence: US)
  Receive Date: 20200217
  Receipt Date: 20200217
  Transmission Date: 20200409
  Serious: Yes (Hospitalization, Other)
  Sender: FDA-Public Use
  Company Number: US-ABBVIE-20K-163-3230796-00

PATIENT
  Age: 61 Year
  Sex: Female
  Weight: 120.31 kg

DRUGS (12)
  1. AMLODIPINE [Concomitant]
     Active Substance: AMLODIPINE BESYLATE
     Indication: HYPERTENSION
  2. HUMIRA [Suspect]
     Active Substance: ADALIMUMAB
     Indication: RHEUMATOID ARTHRITIS
     Route: 058
     Dates: start: 2018, end: 201905
  3. GABAPENTIN. [Concomitant]
     Active Substance: GABAPENTIN
     Indication: ANXIETY
  4. AZATHIOPRINE. [Concomitant]
     Active Substance: AZATHIOPRINE
     Indication: ARTHRITIS
  5. VITAMIN D [Concomitant]
     Active Substance: VITAMIN D NOS
     Indication: VITAMIN SUPPLEMENTATION
  6. ASPIRIN. [Concomitant]
     Active Substance: ASPIRIN
     Indication: THROMBOSIS
  7. TRAZODONE [Concomitant]
     Active Substance: TRAZODONE HYDROCHLORIDE
     Indication: SLEEP DISORDER
  8. LEVOTHYROXINE. [Concomitant]
     Active Substance: LEVOTHYROXINE
     Indication: HYPOTHYROIDISM
  9. ABILIFY [Concomitant]
     Active Substance: ARIPIPRAZOLE
     Indication: PRODUCT USED FOR UNKNOWN INDICATION
  10. NORTRIPTYLINE [Concomitant]
     Active Substance: NORTRIPTYLINE
     Indication: DEPRESSION
  11. TORSEMIDE. [Concomitant]
     Active Substance: TORSEMIDE
     Indication: PERIPHERAL SWELLING
  12. ATORVASTATIN [Concomitant]
     Active Substance: ATORVASTATIN
     Indication: BLOOD CHOLESTEROL

REACTIONS (8)
  - Cognitive disorder [Not Recovered/Not Resolved]
  - Erythema [Not Recovered/Not Resolved]
  - Pain in extremity [Not Recovered/Not Resolved]
  - Speech disorder [Not Recovered/Not Resolved]
  - Cerebral thrombosis [Unknown]
  - Muscular weakness [Not Recovered/Not Resolved]
  - Cerebrovascular accident [Not Recovered/Not Resolved]
  - Peripheral swelling [Not Recovered/Not Resolved]

NARRATIVE: CASE EVENT DATE: 20191209
